FAERS Safety Report 18142339 (Version 8)
Quarter: 2021Q3

REPORT INFORMATION
  Report Type: Spontaneous
  Country: US (occurrence: US)
  Receive Date: 20200812
  Receipt Date: 20210921
  Transmission Date: 20211014
  Serious: Yes (Other)
  Sender: FDA-Public Use
  Company Number: US-BIOVITRUM-2020US3502

PATIENT
  Sex: Female

DRUGS (1)
  1. KINERET [Suspect]
     Active Substance: ANAKINRA
     Indication: RHEUMATOID ARTHRITIS
     Route: 058
     Dates: start: 20200617

REACTIONS (21)
  - Feeding disorder [Unknown]
  - Injection site haemorrhage [Recovered/Resolved]
  - Fatigue [Unknown]
  - Depression [Unknown]
  - Dizziness [Recovered/Resolved]
  - Illness [Unknown]
  - Pain [Unknown]
  - Product dose omission issue [Unknown]
  - Cough [Unknown]
  - Dehydration [Unknown]
  - Urine output decreased [Recovered/Resolved]
  - Rheumatoid arthritis [Unknown]
  - Poor quality sleep [Unknown]
  - Contusion [Unknown]
  - Diarrhoea [Unknown]
  - COVID-19 [Unknown]
  - Chromaturia [Recovered/Resolved]
  - Arthralgia [Unknown]
  - Neoplasm [Unknown]
  - Memory impairment [Unknown]
  - Somnolence [Unknown]
